FAERS Safety Report 7440588-X (Version None)
Quarter: 2011Q2

REPORT INFORMATION
  Report Type: 
  Country: None (occurrence: None)
  Receive Date: 20110427
  Receipt Date: 20110323
  Transmission Date: 20111010
  Serious: Yes (Hospitalization)
  Sender: FDA-Public Use
  Company Number: B0708312A

PATIENT
  Sex: Female

DRUGS (2)
  1. DEPAKENE [Suspect]
     Indication: EPILEPSY
     Dosage: 1200MG PER DAY
     Route: 048
     Dates: end: 20110302
  2. LAMICTAL [Suspect]
     Indication: EPILEPSY
     Dosage: 25MG ALTERNATE DAYS
     Route: 048
     Dates: start: 20110125, end: 20110302

REACTIONS (5)
  - CONVULSION [None]
  - FEELING HOT [None]
  - DRUG ERUPTION [None]
  - STEVENS-JOHNSON SYNDROME [None]
  - PRURITUS GENERALISED [None]
